FAERS Safety Report 12829174 (Version 1)
Quarter: 2016Q4

REPORT INFORMATION
  Report Type: Spontaneous
  Country: US (occurrence: US)
  Receive Date: 20161007
  Receipt Date: 20161007
  Transmission Date: 20170207
  Serious: No
  Sender: FDA-Public Use
  Company Number: US-SA-2016SA008555

PATIENT
  Age: 70 Year
  Sex: Female
  Weight: 72.57 kg

DRUGS (10)
  1. CENTRUM SILVER [Concomitant]
     Active Substance: MINERALS\VITAMINS
  2. LYRICA [Concomitant]
     Active Substance: PREGABALIN
  3. PROVIGIL [Concomitant]
     Active Substance: MODAFINIL
  4. VESICARE [Concomitant]
     Active Substance: SOLIFENACIN SUCCINATE
  5. AUBAGIO [Suspect]
     Active Substance: TERIFLUNOMIDE
     Indication: MULTIPLE SCLEROSIS
     Route: 048
     Dates: start: 201506
  6. VITAMIN B COMPLEX [Concomitant]
     Active Substance: CYANOCOBALAMIN\DEXPANTHENOL\NIACINAMIDE\PYRIDOXINE HYDROCHLORIDE\RIBOFLAVIN 5^-PHOSPHATE SODIUM\THIAMINE HYDROCHLORIDE\VITAMIN B COMPLEX
  7. TRAMADOL. [Concomitant]
     Active Substance: TRAMADOL
  8. SKELAXIN [Concomitant]
     Active Substance: METAXALONE
  9. BIOTIN [Concomitant]
     Active Substance: BIOTIN
  10. TYLENOL [Concomitant]
     Active Substance: ACETAMINOPHEN

REACTIONS (4)
  - Fatigue [Unknown]
  - Pain in extremity [Unknown]
  - Hypoaesthesia [Unknown]
  - Hypertension [Unknown]

NARRATIVE: CASE EVENT DATE: 2015
